FAERS Safety Report 10393726 (Version 6)
Quarter: 2015Q2

REPORT INFORMATION
  Report Type: Report from Study
  Country: DE (occurrence: DE)
  Receive Date: 20140819
  Receipt Date: 20150507
  Transmission Date: 20150821
  Serious: Yes (Death, Hospitalization)
  Sender: FDA-Public Use
  Company Number: DE-PFIZER INC-2014206281

PATIENT
  Age: 53 Year
  Sex: Female
  Weight: 65.1 kg

DRUGS (28)
  1. CRIZOTINIB [Suspect]
     Active Substance: CRIZOTINIB
     Indication: LUNG ADENOCARCINOMA
     Dosage: 200 MG, 2X/DAY
     Dates: start: 20140625, end: 20140716
  2. DEXAMETHASONE. [Concomitant]
     Active Substance: DEXAMETHASONE
     Dosage: 8 MG, 1X/DAY
     Dates: start: 20140621
  3. HYDROMORPHONE [Concomitant]
     Active Substance: HYDROMORPHONE
     Dosage: 16 MG, 2X/DAY
     Dates: start: 20140628
  4. PANTOPRAZOLE [Concomitant]
     Active Substance: PANTOPRAZOLE SODIUM
     Indication: PROPHYLAXIS
     Dosage: 40 MG, 1X/DAY
     Dates: start: 20140624
  5. CEFIXIM [Concomitant]
     Active Substance: CEFIXIME
     Indication: PROPHYLAXIS
     Dosage: 400 MG, 1X/DAY
     Route: 048
     Dates: start: 20140717
  6. PREDNISONE. [Concomitant]
     Active Substance: PREDNISONE
     Dosage: 25 MG, 1X/DAY
     Dates: start: 20140720
  7. VOMEX A [Concomitant]
     Active Substance: DIMENHYDRINATE
     Indication: NAUSEA
     Dosage: 62 MG, AS NEEDED
     Dates: start: 20140626, end: 20140626
  8. PANTOPRAZOLE SUN [Concomitant]
     Active Substance: PANTOPRAZOLE SODIUM
     Indication: PROPHYLAXIS
     Dosage: 40 MG, 1X/DAY
     Dates: start: 20140626, end: 20140627
  9. PREDNISONE. [Concomitant]
     Active Substance: PREDNISONE
     Indication: FATIGUE
     Dosage: 50 MG, 1X/DAY
     Dates: start: 20140716
  10. BERLOSIN [Concomitant]
     Active Substance: METAMIZOLE
     Indication: PAIN
     Dosage: 1000 MG, 3X/DAY
     Dates: start: 20140620, end: 20140702
  11. PALLADON INJEKT [Concomitant]
     Active Substance: HYDROMORPHONE
     Indication: PAIN
     Dosage: 1 MG, AS NEEDED
     Dates: start: 20140621
  12. MCP [Concomitant]
     Active Substance: METOCLOPRAMIDE HYDROCHLORIDE
     Indication: NAUSEA
     Dosage: 10 MG, 2X/DAY
     Dates: start: 20140628
  13. CLEXANE [Concomitant]
     Active Substance: ENOXAPARIN SODIUM
     Indication: THROMBOSIS PROPHYLAXIS
     Dosage: 40 MG, 1X/DAY
     Route: 058
     Dates: start: 20140620
  14. VOMACUR [Concomitant]
     Indication: NAUSEA
     Dosage: 50 MG, AS NEEDED
     Dates: start: 20140620
  15. NOVALGIN [Concomitant]
     Active Substance: METAMIZOLE SODIUM
     Indication: PAIN
     Dosage: 40 GTT, 3X/DAY
     Dates: start: 20140702
  16. TAVOR EXPEDIT [Concomitant]
     Indication: AGITATION
     Dosage: 1 MG, 1X/DAY
     Dates: start: 20140620
  17. PALLADON INJEKT [Concomitant]
     Active Substance: HYDROMORPHONE
     Dosage: 6 MG, 1X/DAY
     Route: 042
     Dates: start: 20140627, end: 20140627
  18. SYMBICORT [Concomitant]
     Active Substance: BUDESONIDE\FORMOTEROL FUMARATE DIHYDRATE
     Indication: PROPHYLAXIS AGAINST GASTROINTESTINAL ULCER
     Dosage: 160/4.5 MG 2X/DAY
  19. NOVAMINSULFON-RATIOPHARM [Concomitant]
     Active Substance: METAMIZOLE
     Indication: PAIN
     Dosage: 1 G, 3X/DAY
     Route: 042
     Dates: start: 20140626, end: 20140627
  20. HYDROMORPHONE [Concomitant]
     Active Substance: HYDROMORPHONE
     Indication: PAIN
     Dosage: 20 MG, 2X/DAY
     Dates: start: 20140621, end: 20140625
  21. MORPHINE [Concomitant]
     Active Substance: MORPHINE
     Indication: DYSPNOEA
     Dosage: 2.5 MG, AS NEEDED
     Dates: start: 20140721, end: 20140721
  22. PALLADON INJEKT [Concomitant]
     Active Substance: HYDROMORPHONE
     Dosage: 10 MG, 1X/DAY
     Route: 042
     Dates: start: 20140626, end: 20140626
  23. MCP ^RATIOPHARM^ [Concomitant]
     Indication: NAUSEA
     Dosage: 10 MG/2 ML, 2XDAY
     Route: 042
     Dates: start: 20140626, end: 20140627
  24. DEXAMETHASON JENAPHARM [Concomitant]
     Active Substance: DEXAMETHASONE
     Dosage: 8 MG, 1X/DAY
     Route: 042
     Dates: start: 20140626, end: 20140627
  25. LAXANS ^RATIOPHARM^ [Concomitant]
     Indication: CONSTIPATION
     Dosage: 10 GTT, 2X/DAY
     Dates: start: 20140621
  26. VOMACUR [Concomitant]
     Dosage: 50 MG, 3X/DAY
     Dates: start: 20140620, end: 20140625
  27. TAVOR EXPEDIT [Concomitant]
     Dosage: 0.5 MG, AS NEEDED
     Dates: start: 20140622
  28. PALLADON INJEKT [Concomitant]
     Active Substance: HYDROMORPHONE
     Dosage: 8 MG, 1X/DAY
     Route: 042
     Dates: start: 20140626, end: 20140627

REACTIONS (2)
  - Pulmonary embolism [Fatal]
  - Deep vein thrombosis [Fatal]

NARRATIVE: CASE EVENT DATE: 20140721
